FAERS Safety Report 12362386 (Version 5)
Quarter: 2016Q3

REPORT INFORMATION
  Report Type: Report from Study
  Country: HU (occurrence: HU)
  Receive Date: 20160512
  Receipt Date: 20160704
  Transmission Date: 20161109
  Serious: Yes (Death, Hospitalization, Other)
  Sender: FDA-Public Use
  Company Number: HU-ABBVIE-16P-076-1625887-00

PATIENT
  Age: 70 Year
  Sex: Male

DRUGS (7)
  1. QUETIAPINE. [Concomitant]
     Active Substance: QUETIAPINE
     Indication: HALLUCINATION
     Dosage: 0.5 TABLET AT A TIME
     Route: 048
  2. ASPIRIN PROTECT [Concomitant]
     Active Substance: ASPIRIN
     Indication: PRODUCT USED FOR UNKNOWN INDICATION
     Route: 048
  3. YAROCEN [Concomitant]
     Indication: DEPRESSION
     Dosage: 2 TABLETS IN THE EVENINGS
     Route: 048
  4. DUODOPA [Suspect]
     Active Substance: CARBIDOPA\LEVODOPA
     Indication: PARKINSON^S DISEASE
     Dosage: MORNING DOSE: 9.5ML; CONTINUOUS DOSE 4.4ML/H;EXTRA DOSE 1.8ML
     Route: 050
     Dates: start: 20111206
  5. CONCOR [Concomitant]
     Active Substance: BISOPROLOL FUMARATE
     Indication: HYPERTENSION
     Route: 048
     Dates: start: 2010
  6. LETROX [Concomitant]
     Active Substance: LEVOTHYROXINE SODIUM
     Indication: HYPOTHYROIDISM
     Route: 048
     Dates: start: 2010
  7. RIVOTRIL [Concomitant]
     Active Substance: CLONAZEPAM
     Indication: ANXIETY
     Route: 048

REACTIONS (9)
  - Cardiac arrest [Fatal]
  - Cardiac failure [Fatal]
  - Memory impairment [Recovered/Resolved]
  - Dementia [Not Recovered/Not Resolved]
  - Fall [Recovered/Resolved]
  - Condition aggravated [Unknown]
  - Cognitive disorder [Unknown]
  - Humerus fracture [Recovering/Resolving]
  - Psychotic behaviour [Not Recovered/Not Resolved]

NARRATIVE: CASE EVENT DATE: 201603
